FAERS Safety Report 12259068 (Version 1)
Quarter: 2016Q2

REPORT INFORMATION
  Report Type: Spontaneous
  Country: US (occurrence: US)
  Receive Date: 20160412
  Receipt Date: 20160412
  Transmission Date: 20160815
  Serious: No
  Sender: FDA-Public Use
  Company Number: US-SA-2015SA072678

PATIENT

DRUGS (1)
  1. ALLEGRA ALLERGY [Suspect]
     Active Substance: FEXOFENADINE HYDROCHLORIDE
     Indication: HYPERSENSITIVITY
     Dosage: TOOK ONE OF THE NEW ALLEGRA ALLERGY 24 HOURS PILLS, THIS MORNING AROUND 9 AM
     Route: 048
     Dates: start: 20150522

REACTIONS (1)
  - Drug ineffective [Unknown]
